FAERS Safety Report 12078780 (Version 1)
Quarter: 2016Q1

REPORT INFORMATION
  Report Type: Spontaneous
  Country: PL (occurrence: PL)
  Receive Date: 20160216
  Receipt Date: 20160216
  Transmission Date: 20160526
  Serious: Yes (Death, Other)
  Sender: FDA-Public Use
  Company Number: PL-ACCORD-037894

PATIENT
  Age: 40 Year
  Sex: Male

DRUGS (2)
  1. GEMCITABINE/GEMCITABINE HYDROCHLORIDE [Suspect]
     Active Substance: GEMCITABINE\GEMCITABINE HYDROCHLORIDE
     Indication: PANCREATIC CARCINOMA
  2. ERLOTINIB/ERLOTINIB HYDROCHLORIDE [Suspect]
     Active Substance: ERLOTINIB HYDROCHLORIDE
     Indication: PANCREATIC CARCINOMA

REACTIONS (7)
  - Mesenteric vein thrombosis [Unknown]
  - Ascites [Unknown]
  - Oesophageal varices haemorrhage [Unknown]
  - Rash [Unknown]
  - Portal hypertension [Unknown]
  - Neutropenia [Unknown]
  - Leukopenia [Unknown]
